FAERS Safety Report 8977840 (Version 1)
Quarter: 2012Q4

REPORT INFORMATION
  Report Type: Report from Study
  Country: CA (occurrence: CA)
  Receive Date: 20121220
  Receipt Date: 20121220
  Transmission Date: 20130627
  Serious: Yes (Other)
  Sender: FDA-Public Use
  Company Number: CA-ROCHE-1171866

PATIENT
  Age: 31 Year
  Sex: Female
  Weight: 56 kg

DRUGS (3)
  1. OMALIZUMAB [Suspect]
     Indication: PRODUCT USED FOR UNKNOWN INDICATION
     Route: 058
     Dates: start: 20050425
  2. PREDNISONE [Suspect]
     Indication: PRODUCT USED FOR UNKNOWN INDICATION
     Route: 065
  3. METFORMIN [Concomitant]

REACTIONS (8)
  - Cataract [Unknown]
  - Sinusitis [Recovering/Resolving]
  - Dyspnoea [Unknown]
  - Malaise [Unknown]
  - Insomnia [Unknown]
  - Ear discomfort [Recovering/Resolving]
  - Productive cough [Unknown]
  - Nasopharyngitis [Unknown]
